FAERS Safety Report 6490604-7 (Version None)
Quarter: 2009Q4

REPORT INFORMATION
  Report Type: 
  Country: None (occurrence: None)
  Receive Date: 20091211
  Receipt Date: 20091127
  Transmission Date: 20100525
  Serious: Yes (Hospitalization, Other)
  Sender: FDA-Public Use
  Company Number: DE-ELI_LILLY_AND_COMPANY-DE200911004158

PATIENT
  Sex: Female
  Weight: 103 kg

DRUGS (5)
  1. CYMBALTA [Suspect]
     Dosage: UNK, UNKNOWN
     Route: 048
  2. FLUOXETINE HCL [Suspect]
     Dosage: 20 MG, UNKNOWN
     Route: 048
  3. DIAZEPAM [Concomitant]
     Dosage: 10 MG, UNKNOWN
     Route: 048
  4. DIAZEPAM [Concomitant]
     Dosage: 75 MG, UNKNOWN
     Route: 048
  5. LORAZEPAM [Concomitant]
     Dosage: 4 MG, UNKNOWN
     Route: 048

REACTIONS (3)
  - FATIGUE [None]
  - SUICIDE ATTEMPT [None]
  - SYNCOPE [None]
